FAERS Safety Report 10269159 (Version 1)
Quarter: 2014Q2

REPORT INFORMATION
  Report Type: Spontaneous
  Country: US (occurrence: US)
  Receive Date: 20140630
  Receipt Date: 20140630
  Transmission Date: 20141212
  Serious: No
  Sender: FDA-Public Use
  Company Number: US-SA-2014SA027473

PATIENT
  Age: 85 Year
  Sex: Female
  Weight: 51.5 kg

DRUGS (4)
  1. HECTOROL [Suspect]
     Indication: RENAL FAILURE CHRONIC
     Dosage: DOSE:2 MICROGRAM(S)/MILLILITRE
     Route: 042
     Dates: start: 20140101, end: 20140101
  2. EPOGEN [Concomitant]
     Indication: RENAL FAILURE CHRONIC
     Dosage: DOSE:5000 UNIT(S)
     Dates: start: 20130407
  3. VENOFER [Concomitant]
     Indication: RENAL FAILURE CHRONIC
     Dates: start: 20130114
  4. COREG [Concomitant]

REACTIONS (1)
  - Pruritus [Recovered/Resolved]
